FAERS Safety Report 10686244 (Version 3)
Quarter: 2015Q1

REPORT INFORMATION
  Report Type: Spontaneous
  Country: US (occurrence: US)
  Receive Date: 20141231
  Receipt Date: 20150107
  Transmission Date: 20150720
  Serious: No
  Sender: FDA-Public Use
  Company Number: US-BAXTER-2014BAX074331

PATIENT
  Age: 51 Year
  Sex: Female

DRUGS (3)
  1. TISSEEL KIT [Suspect]
     Active Substance: FIBRINOGEN HUMAN\THROMBIN HUMAN
     Indication: PTERYGIUM
  2. TISSEEL KIT [Suspect]
     Active Substance: FIBRINOGEN HUMAN\THROMBIN HUMAN
     Indication: OFF LABEL USE
  3. TISSEEL KIT [Suspect]
     Active Substance: FIBRINOGEN HUMAN\THROMBIN HUMAN
     Indication: AMNIOTIC MEMBRANE GRAFT
     Route: 065
     Dates: start: 20141204

REACTIONS (3)
  - Product physical consistency issue [Unknown]
  - Graft complication [Unknown]
  - Drug ineffective [Unknown]

NARRATIVE: CASE EVENT DATE: 20141204
